FAERS Safety Report 5861310-4 (Version None)
Quarter: 2008Q3

REPORT INFORMATION
  Report Type: 
  Country: None (occurrence: None)
  Receive Date: 20080827
  Receipt Date: 20080416
  Transmission Date: 20090109
  Serious: No
  Sender: FDA-Public Use
  Company Number: US-ABBOTT-08P-163-0447648-00

PATIENT
  Sex: Male
  Weight: 111.23 kg

DRUGS (6)
  1. NIASPAN [Suspect]
     Indication: BLOOD CHOLESTEROL INCREASED
     Dosage: 2-750MG TABLETS AT NIGHT
     Route: 048
     Dates: start: 20080301, end: 20080414
  2. NIASPAN [Suspect]
     Dosage: 750 MG ONE TAB IN AM AND ONE TAB IN PM
     Route: 048
     Dates: start: 20080414
  3. NIASPAN [Suspect]
     Route: 048
     Dates: start: 20080201, end: 20080301
  4. ACETYLSALICYLIC ACID SRT [Concomitant]
     Indication: PROPHYLAXIS
     Route: 048
  5. METOPROLOL SUCCINATE [Concomitant]
     Indication: OEDEMA PERIPHERAL
     Route: 048
     Dates: start: 20080201
  6. METOPROLOL SUCCINATE [Concomitant]
     Indication: JOINT SWELLING

REACTIONS (2)
  - ERYTHEMA [None]
  - HOT FLUSH [None]
